FAERS Safety Report 8804628 (Version 1)
Quarter: 2012Q4

REPORT INFORMATION
  Report Type: 
  Country: US (occurrence: US)
  Receive Date: 20120923
  Receipt Date: 20120923
  Transmission Date: 20130627
  Serious: Yes (Other)
  Sender: FDA-Public Use
  Company Number: US-ROXANE LABORATORIES, INC.-2012-RO-01897RO

PATIENT
  Sex: Male

DRUGS (1)
  1. PREDNISONE [Suspect]

REACTIONS (2)
  - Suicidal ideation [Unknown]
  - Agitation [Unknown]
